FAERS Safety Report 6735564-6 (Version None)
Quarter: 2010Q2

REPORT INFORMATION
  Report Type: 
  Country: None (occurrence: None)
  Receive Date: 20100521
  Receipt Date: 20100512
  Transmission Date: 20101027
  Serious: Yes (Other)
  Sender: FDA-Public Use
  Company Number: FR-AMGEN-US404511

PATIENT
  Age: 43 Year
  Sex: Female

DRUGS (2)
  1. ENBREL [Suspect]
     Indication: RHEUMATOID ARTHRITIS
     Dosage: LYOPHILIZED/50 MG 1 TIME PER WEEK
     Route: 058
     Dates: start: 20060501
  2. ENBREL [Suspect]
     Route: 058
     Dates: end: 20090501

REACTIONS (1)
  - EYE DISORDER [None]
